FAERS Safety Report 6584501-6 (Version None)
Quarter: 2010Q1

REPORT INFORMATION
  Report Type: 
  Country: None (occurrence: None)
  Receive Date: 20100217
  Receipt Date: 20100204
  Transmission Date: 20100710
  Serious: Yes (Other)
  Sender: FDA-Public Use
  Company Number: US-BIOGENIDEC-2009BI042104

PATIENT
  Age: 48 Year
  Sex: Female

DRUGS (1)
  1. TYSABRI [Suspect]
     Indication: MULTIPLE SCLEROSIS
     Route: 042
     Dates: start: 20080410

REACTIONS (9)
  - FAECES DISCOLOURED [None]
  - INFLUENZA LIKE ILLNESS [None]
  - KIDNEY INFECTION [None]
  - LIVER DISORDER [None]
  - MOBILITY DECREASED [None]
  - MULTIPLE SCLEROSIS [None]
  - RENAL FAILURE ACUTE [None]
  - URINARY TRACT DISORDER [None]
  - VISCERAL OEDEMA [None]
